FAERS Safety Report 8096769-8 (Version None)
Quarter: 2012Q1

REPORT INFORMATION
  Report Type: 
  Country: None (occurrence: None)
  Receive Date: 20120129
  Receipt Date: 20111129
  Transmission Date: 20120608
  Serious: Yes (Hospitalization)
  Sender: FDA-Public Use
  Company Number: US-ABBOTT-11P-163-0862037-00

PATIENT
  Sex: Male
  Weight: 79.45 kg

DRUGS (8)
  1. CELEBREX [Concomitant]
     Indication: RHEUMATOID ARTHRITIS
  2. HUMIRA [Suspect]
     Indication: RHEUMATOID ARTHRITIS
     Route: 058
     Dates: start: 20110401
  3. FOLIC ACID [Concomitant]
     Indication: RHEUMATOID ARTHRITIS
  4. LANTUS [Concomitant]
     Indication: DIABETES MELLITUS
  5. METHOTREXATE [Suspect]
     Indication: RHEUMATOID ARTHRITIS
  6. SULFASALAZINE [Concomitant]
     Indication: RHEUMATOID ARTHRITIS
  7. NOVOLOG [Concomitant]
     Indication: DIABETES MELLITUS
  8. VITAMIN TAB [Concomitant]
     Indication: VITAMIN SUPPLEMENTATION

REACTIONS (4)
  - ARTHRITIS [None]
  - ALOPECIA [None]
  - SKIN EXFOLIATION [None]
  - MUSCULOSKELETAL PAIN [None]
